FAERS Safety Report 20800800 (Version 3)
Quarter: 2023Q1

REPORT INFORMATION
  Report Type: Report from Study
  Country: US (occurrence: US)
  Receive Date: 20220509
  Receipt Date: 20230106
  Transmission Date: 20230417
  Serious: Yes (Hospitalization, Disabling, Other)
  Sender: FDA-Public Use
  Company Number: US-GILEAD-2022-0578241

PATIENT
  Age: 62 Year
  Sex: Male
  Weight: 104 kg

DRUGS (15)
  1. BREXUCABTAGENE AUTOLEUCEL [Suspect]
     Active Substance: BREXUCABTAGENE AUTOLEUCEL
     Indication: Mantle cell lymphoma
     Dosage: 68 (NO UNITS)
     Route: 042
     Dates: start: 20220411, end: 20220411
  2. CYCLOPHOSPHAMIDE [Suspect]
     Active Substance: CYCLOPHOSPHAMIDE
     Indication: Bone marrow conditioning regimen
     Dosage: 1116
     Route: 042
     Dates: start: 20220406, end: 20220408
  3. FLUDARABINE [Suspect]
     Active Substance: FLUDARABINE PHOSPHATE
     Indication: Bone marrow conditioning regimen
     Dosage: 67
     Route: 042
     Dates: start: 20220406, end: 20220408
  4. ACYCLOVIR [Concomitant]
     Active Substance: ACYCLOVIR
     Dosage: 400,MG,TWICE DAILY
     Route: 048
     Dates: start: 20220324
  5. ATIVAN [Concomitant]
     Active Substance: LORAZEPAM
     Dosage: UNK
     Dates: start: 20220410, end: 20220426
  6. CYANOCOBALAMIN [Concomitant]
     Active Substance: CYANOCOBALAMIN
     Dosage: 100,OTHER,DAILY
     Route: 048
     Dates: start: 20211202, end: 20220425
  7. CHOLECALCIFEROL [Concomitant]
     Active Substance: CHOLECALCIFEROL
     Dosage: 50,MG,TWICE DAILY
     Route: 048
     Dates: start: 20211221, end: 20220425
  8. IMODIUM [Concomitant]
     Active Substance: LOPERAMIDE HYDROCHLORIDE
     Dosage: 4,MG,OTHER
     Route: 048
     Dates: start: 20220410, end: 20220426
  9. TYLENOL [Concomitant]
     Active Substance: ACETAMINOPHEN
     Dosage: 650,MG,OTHER
     Route: 048
     Dates: start: 20220410, end: 20220426
  10. CEFEPIME [Concomitant]
     Active Substance: CEFEPIME HYDROCHLORIDE
     Dosage: 50,ML,OTHER
     Route: 042
     Dates: start: 20220412, end: 20220417
  11. POTASSIUM PHOSPHATES [Concomitant]
     Active Substance: POTASSIUM PHOSPHATE, DIBASIC\POTASSIUM PHOSPHATE, MONOBASIC
     Dosage: 20,OTHER,ONCE
     Route: 042
     Dates: start: 20220412, end: 20220412
  12. TOCILIZUMAB [Concomitant]
     Active Substance: TOCILIZUMAB
     Dosage: 800,MG,ONCE
     Route: 042
     Dates: start: 20220413, end: 20220413
  13. TOCILIZUMAB [Concomitant]
     Active Substance: TOCILIZUMAB
     Dosage: 800,MG,ONCE
     Route: 042
     Dates: start: 20220415, end: 20220415
  14. DEXAMETHASONE [Concomitant]
     Active Substance: DEXAMETHASONE
     Dosage: 10,MG,ONCE
     Route: 042
     Dates: start: 20220413, end: 20220413
  15. DEXAMETHASONE [Concomitant]
     Active Substance: DEXAMETHASONE
     Dosage: 10,MG,ONCE
     Route: 042
     Dates: start: 20220415, end: 20220415

REACTIONS (3)
  - Tremor [Recovered/Resolved]
  - Mental status changes [Recovered/Resolved]
  - Aphasia [Recovered/Resolved]

NARRATIVE: CASE EVENT DATE: 20220416
